FAERS Safety Report 4485848-X (Version None)
Quarter: 2004Q3

REPORT INFORMATION
  Report Type: 
  Country: None (occurrence: None)
  Receive Date: 20040921
  Receipt Date: 20030806
  Transmission Date: 20050211
  Serious: Yes (Death)
  Sender: FDA-Public Use
  Company Number: 163-20785-03100068

PATIENT
  Age: 52 Year
  Sex: Female
  Weight: 39.3269 kg

DRUGS (2)
  1. THALOMID [Suspect]
     Indication: RENAL CANCER METASTATIC
     Dosage: 200 MG, QD, ORAL
     Route: 048
     Dates: start: 20011026, end: 20011109
  2. ALPHA 2 INTERFERON (INJECTION) [Suspect]
     Indication: RENAL CANCER METASTATIC
     Dosage: 1 MILLION IU/SC, BID FOR 12 WEEKS, SUBCUTANEOUS)
     Route: 058
     Dates: start: 20011026, end: 20011109

REACTIONS (3)
  - DEATH [None]
  - DISEASE PROGRESSION [None]
  - RENAL FAILURE [None]
